FAERS Safety Report 7450281-5 (Version None)
Quarter: 2011Q2

REPORT INFORMATION
  Report Type: 
  Country: None (occurrence: None)
  Receive Date: 20110429
  Receipt Date: 20110429
  Transmission Date: 20111010
  Serious: No
  Sender: FDA-Public Use
  Company Number: None

PATIENT
  Age: 84 Year
  Sex: Male

DRUGS (1)
  1. HEPARIN [Suspect]
     Indication: CATHETERISATION CARDIAC
     Dosage: 3000 UNITS ONCE

REACTIONS (1)
  - THROMBOSIS IN DEVICE [None]
